FAERS Safety Report 5581758-5 (Version None)
Quarter: 2008Q1

REPORT INFORMATION
  Report Type: 
  Country: None (occurrence: None)
  Receive Date: 20080104
  Receipt Date: 20071228
  Transmission Date: 20080703
  Serious: Yes (Hospitalization, Other)
  Sender: FDA-Public Use
  Company Number: DE-PFIZER INC-2007046507

PATIENT
  Sex: Male

DRUGS (1)
  1. SORTIS [Suspect]
     Indication: HYPERCHOLESTEROLAEMIA
     Route: 048
     Dates: start: 20011105, end: 20070304

REACTIONS (3)
  - BLOOD BRAIN BARRIER DEFECT [None]
  - NEUROPATHY PERIPHERAL [None]
  - POLYNEUROPATHY [None]
